FAERS Safety Report 9221124 (Version 1)
Quarter: 2013Q2

REPORT INFORMATION
  Report Type: Spontaneous
  Country: IT (occurrence: IT)
  Receive Date: 20130409
  Receipt Date: 20130409
  Transmission Date: 20140414
  Serious: Yes (Other)
  Sender: FDA-Public Use
  Company Number: IT-AMGEN-ITASP2013023641

PATIENT
  Age: 79 Year
  Sex: Female

DRUGS (2)
  1. VECTIBIX [Suspect]
     Indication: COLORECTAL CANCER METASTATIC
     Dosage: 6 MG/KG, CYCLICAL
     Route: 042
     Dates: start: 20130116, end: 20130116
  2. DELTACORTENE [Concomitant]
     Dosage: 25 MG, UNK
     Route: 048
     Dates: start: 20130117, end: 20130130

REACTIONS (1)
  - Blood bilirubin increased [Recovering/Resolving]
